FAERS Safety Report 6207988-7 (Version None)
Quarter: 2009Q2

REPORT INFORMATION
  Report Type: 
  Country: None (occurrence: None)
  Receive Date: 20090529
  Receipt Date: 20090219
  Transmission Date: 20091009
  Serious: No
  Sender: FDA-Public Use
  Company Number: A0769521A

PATIENT
  Age: 79 Year
  Sex: Male

DRUGS (2)
  1. VENTOLIN [Suspect]
     Indication: BRONCHOSPASM
     Route: 055
     Dates: start: 20090216, end: 20090219
  2. LOVASTATIN [Concomitant]

REACTIONS (1)
  - OVERDOSE [None]
